FAERS Safety Report 16678183 (Version 1)
Quarter: 2019Q3

REPORT INFORMATION
  Report Type: Spontaneous
  Country: US (occurrence: US)
  Receive Date: 20190806
  Receipt Date: 20190806
  Transmission Date: 20191004
  Serious: Yes (Other)
  Sender: FDA-Public Use
  Company Number: None

PATIENT
  Age: 67 Year
  Sex: Female
  Weight: 108 kg

DRUGS (6)
  1. CPAP [Concomitant]
     Active Substance: DEVICE
  2. GENERIC CLARIDEN [Concomitant]
  3. B3 [Concomitant]
  4. EXTRA-STRENGTH GENERIC TYLENOL [Concomitant]
  5. PRIMATINE MIST [Concomitant]
  6. AMLOPIDINE BESYLATE 5 MG TAB UNIC [Suspect]
     Active Substance: AMLODIPINE BESYLATE
     Indication: HYPERTENSION
     Dosage: ?          QUANTITY:90 TABLET(S);?
     Route: 048
     Dates: start: 20190726, end: 20190805

REACTIONS (2)
  - Deafness [None]
  - Tinnitus [None]

NARRATIVE: CASE EVENT DATE: 20190806
